FAERS Safety Report 26011596 (Version 1)
Quarter: 2025Q4

REPORT INFORMATION
  Report Type: Report from Study
  Country: US (occurrence: US)
  Receive Date: 20251107
  Receipt Date: 20251107
  Transmission Date: 20260118
  Serious: Yes (Hospitalization)
  Sender: TEVA
  Company Number: US-TEVA-VS-3388105

PATIENT
  Age: 57 Year
  Sex: Female

DRUGS (2)
  1. AUSTEDO XR [Suspect]
     Active Substance: DEUTETRABENAZINE
     Indication: Huntington^s disease
     Dosage: 12-18-24-30 MG TITRATION KIT, RX#1 TAKE DOSE BY MOUTH DAILY PER PRODUCT PACKAGE INSTRUCTIONS
     Route: 048
  2. ALEVE [Concomitant]
     Active Substance: NAPROXEN SODIUM
     Indication: Product used for unknown indication

REACTIONS (3)
  - Back injury [Not Recovered/Not Resolved]
  - Drug ineffective [Unknown]
  - Exostosis [Not Recovered/Not Resolved]
